FAERS Safety Report 14417487 (Version 1)
Quarter: 2018Q1

REPORT INFORMATION
  Report Type: Spontaneous
  Country: IT (occurrence: IT)
  Receive Date: 20180122
  Receipt Date: 20180122
  Transmission Date: 20180509
  Serious: Yes (Death, Other)
  Sender: FDA-Public Use
  Company Number: IT-LUPIN PHARMACEUTICALS INC.-2018-00111

PATIENT
  Age: 17 Year
  Sex: Male

DRUGS (1)
  1. TRAMADOL. [Suspect]
     Active Substance: TRAMADOL
     Indication: PAIN
     Dosage: UNK
     Route: 065

REACTIONS (5)
  - Respiratory depression [Fatal]
  - Toxicity to various agents [Fatal]
  - Overdose [Fatal]
  - Completed suicide [Fatal]
  - Pulmonary oedema [Fatal]
